FAERS Safety Report 9333262 (Version 2)
Quarter: 2013Q2

REPORT INFORMATION
  Report Type: Spontaneous
  Country: JP (occurrence: JP)
  Receive Date: 20130606
  Receipt Date: 20130606
  Transmission Date: 20140414
  Serious: Yes (Life-Threatening, Hospitalization)
  Sender: FDA-Public Use
  Company Number: JP-JNJFOC-20130204807

PATIENT
  Age: 47 Year
  Sex: Male
  Weight: 67 kg

DRUGS (8)
  1. REMICADE [Suspect]
     Indication: COLITIS ULCERATIVE
     Route: 042
     Dates: start: 20130108
  2. REMICADE [Suspect]
     Indication: COLITIS ULCERATIVE
     Dosage: RECEIVED 2 DOSES OF INFLIXIMAB
     Route: 042
     Dates: start: 20121225
  3. ADRENAL HORMONE PREPARATIONS [Suspect]
     Indication: PRODUCT USED FOR UNKNOWN INDICATION
     Route: 065
  4. PREDONINE [Suspect]
     Indication: COLITIS ULCERATIVE
     Route: 042
     Dates: start: 20121211
  5. PREDONINE [Suspect]
     Indication: COLITIS ULCERATIVE
     Route: 042
     Dates: end: 20130305
  6. ASACOL [Concomitant]
     Indication: COLITIS ULCERATIVE
     Route: 048
     Dates: start: 20121211
  7. TAKEPRON [Concomitant]
     Indication: COLITIS ULCERATIVE
     Route: 048
     Dates: start: 20121211
  8. PENTASA [Concomitant]
     Route: 048
     Dates: start: 1999

REACTIONS (1)
  - Pneumocystis jirovecii pneumonia [Recovering/Resolving]
